FAERS Safety Report 5744469-9 (Version None)
Quarter: 2008Q2

REPORT INFORMATION
  Report Type: 
  Country: None (occurrence: None)
  Receive Date: 20080516
  Receipt Date: 20080429
  Transmission Date: 20081010
  Serious: Yes (Hospitalization)
  Sender: FDA-Public Use
  Company Number: 2008AL002894

PATIENT
  Age: 79 Year
  Sex: Female

DRUGS (1)
  1. DIGOXIN [Suspect]
     Indication: PALPITATIONS
     Dosage: 0.25 MG PO
     Route: 048

REACTIONS (2)
  - DIZZINESS [None]
  - PALPITATIONS [None]
